FAERS Safety Report 4788453-0 (Version None)
Quarter: 2005Q4

REPORT INFORMATION
  Report Type: 
  Country: None (occurrence: None)
  Receive Date: 20051003
  Receipt Date: 20050919
  Transmission Date: 20060501
  Serious: Yes (Death, Hospitalization)
  Sender: FDA-Public Use
  Company Number: ERD2003A00144

PATIENT
  Age: 77 Year
  Sex: Male

DRUGS (9)
  1. PIOGLITAZONE HCL [Suspect]
     Indication: DIABETES MELLITUS NON-INSULIN-DEPENDENT
     Dosage: 15 MG, ORAL
     Route: 048
     Dates: start: 20011115, end: 20030822
  2. METFORMIN HCL [Concomitant]
  3. TORASEMID (TORASEMIDE) [Concomitant]
  4. ALLOPURINOL [Concomitant]
  5. DIGOXIN [Concomitant]
  6. ASPIRIN [Concomitant]
  7. BISOPROLOL (BISOPROLOL) [Concomitant]
  8. ISOSORBID MONONITRAT (ISOSORBIDE MONONITRATE) [Concomitant]
  9. SPIRONOLACTON (SPIRONOLCTONE) [Concomitant]

REACTIONS (14)
  - ATRIAL FIBRILLATION [None]
  - BUNDLE BRANCH BLOCK RIGHT [None]
  - CARDIAC FAILURE CONGESTIVE [None]
  - CHRONIC OBSTRUCTIVE PULMONARY DISEASE [None]
  - FALL [None]
  - FEELING ABNORMAL [None]
  - GENERAL PHYSICAL HEALTH DETERIORATION [None]
  - MULTI-ORGAN FAILURE [None]
  - PLEURAL EFFUSION [None]
  - PNEUMONIA [None]
  - PULMONARY OEDEMA [None]
  - RENAL FAILURE ACUTE [None]
  - TREATMENT NONCOMPLIANCE [None]
  - VENTRICULAR TACHYCARDIA [None]
